FAERS Safety Report 8178840-5 (Version None)
Quarter: 2012Q1

REPORT INFORMATION
  Report Type: 
  Country: None (occurrence: None)
  Receive Date: 20120302
  Receipt Date: 20120220
  Transmission Date: 20120608
  Serious: Yes (Death, Hospitalization, Other)
  Sender: FDA-Public Use
  Company Number: BR-AMGEN-BRASP2012011360

PATIENT
  Age: 57 Year
  Sex: Female

DRUGS (2)
  1. CAPTOPRIL [Concomitant]
     Indication: HYPERTENSION
     Dosage: UNK
  2. ENBREL [Suspect]
     Indication: RHEUMATOID ARTHRITIS
     Dosage: UNK
     Route: 058
     Dates: start: 20110501, end: 20110901

REACTIONS (9)
  - PNEUMONIA [None]
  - LUNG INFECTION [None]
  - PRURITUS [None]
  - LOSS OF CONSCIOUSNESS [None]
  - SYNCOPE [None]
  - INFECTION [None]
  - FUNGAL INFECTION [None]
  - PSORIASIS [None]
  - IMMUNE SYSTEM DISORDER [None]
